FAERS Safety Report 19120417 (Version 9)
Quarter: 2022Q3

REPORT INFORMATION
  Report Type: Spontaneous
  Country: JP (occurrence: JP)
  Receive Date: 20210412
  Receipt Date: 20220819
  Transmission Date: 20221027
  Serious: Yes (Life-Threatening, Hospitalization)
  Sender: FDA-Public Use
  Company Number: JP-ABBVIE-21K-087-3855176-00

PATIENT
  Sex: Male
  Weight: 63.4 kg

DRUGS (11)
  1. HUMIRA [Suspect]
     Active Substance: ADALIMUMAB
     Indication: Hidradenitis
     Route: 058
     Dates: start: 20191029, end: 20210125
  2. HUMIRA [Suspect]
     Active Substance: ADALIMUMAB
     Route: 058
     Dates: start: 20210506, end: 2021
  3. EPINASTINE HYDROCHLORIDE [Concomitant]
     Active Substance: EPINASTINE HYDROCHLORIDE
     Indication: Hidradenitis
  4. MINOCYCLINE HYDROCHLORIDE [Concomitant]
     Active Substance: MINOCYCLINE HYDROCHLORIDE
     Indication: Hidradenitis
  5. CLINDAMYCIN HYDROCHLORIDE [Concomitant]
     Active Substance: CLINDAMYCIN HYDROCHLORIDE
     Indication: Hidradenitis
  6. RIFAMPIN [Concomitant]
     Active Substance: RIFAMPIN
     Indication: Hidradenitis
  7. CALCIUM POLYSTYRENE SULFONATE [Concomitant]
     Active Substance: CALCIUM POLYSTYRENE SULFONATE
     Indication: Product used for unknown indication
  8. LANTHANUM CARBONATE [Concomitant]
     Active Substance: LANTHANUM CARBONATE
     Indication: Product used for unknown indication
  9. FAMOTIDINE [Concomitant]
     Active Substance: FAMOTIDINE
     Indication: Product used for unknown indication
  10. ALOSENN [Concomitant]
     Indication: Product used for unknown indication
  11. TEPRENONE [Concomitant]
     Active Substance: TEPRENONE
     Indication: Product used for unknown indication

REACTIONS (6)
  - Hypervolaemia [Recovered/Resolved]
  - Hypervolaemia [Recovered/Resolved]
  - Cardiac failure [Recovered/Resolved]
  - Cardiomegaly [Recovering/Resolving]
  - Pulmonary congestion [Recovering/Resolving]
  - Hidradenitis [Unknown]

NARRATIVE: CASE EVENT DATE: 20210101
